FAERS Safety Report 12518786 (Version 2)
Quarter: 2016Q4

REPORT INFORMATION
  Report Type: Spontaneous
  Country: US (occurrence: US)
  Receive Date: 20160630
  Receipt Date: 20161107
  Transmission Date: 20170207
  Serious: No
  Sender: FDA-Public Use
  Company Number: US-GLAXOSMITHKLINE-US2016093345

PATIENT
  Age: 66 Year
  Sex: Female

DRUGS (2)
  1. SENSODYNE [Suspect]
     Active Substance: POTASSIUM NITRATE\SODIUM FLUORIDE
     Indication: PRODUCT USED FOR UNKNOWN INDICATION
     Dosage: UNK
     Dates: start: 2006
  2. SENSODYNE REPAIR AND PROTECT WHITENING [Suspect]
     Active Substance: STANNOUS FLUORIDE
     Indication: SENSITIVITY OF TEETH
     Dosage: UNK
     Dates: end: 20160622

REACTIONS (5)
  - Oral pain [Recovered/Resolved]
  - Oral discomfort [Unknown]
  - Oropharyngeal plaque [Recovered/Resolved]
  - Stomatitis [Recovered/Resolved]
  - Tongue discomfort [Unknown]

NARRATIVE: CASE EVENT DATE: 201604
